FAERS Safety Report 4501232-4 (Version None)
Quarter: 2004Q4

REPORT INFORMATION
  Report Type: 
  Country: None (occurrence: None)
  Receive Date: 20040927
  Receipt Date: 20040823
  Transmission Date: 20050328
  Serious: No
  Sender: FDA-Public Use
  Company Number: USA040876286

PATIENT
  Age: 11 Year
  Sex: Male
  Weight: 34 kg

DRUGS (2)
  1. STRATTERA [Suspect]
     Indication: ATTENTION DEFICIT/HYPERACTIVITY DISORDER
     Dosage: 30 MG DAY
     Dates: start: 20031201
  2. METHYLPHENIDATE HCL [Concomitant]

REACTIONS (3)
  - ENURESIS [None]
  - FLAT AFFECT [None]
  - PERSONALITY CHANGE [None]
